FAERS Safety Report 7691500-X (Version None)
Quarter: 2011Q3

REPORT INFORMATION
  Report Type: 
  Country: None (occurrence: None)
  Receive Date: 20110818
  Receipt Date: 20110810
  Transmission Date: 20111222
  Serious: Yes (Hospitalization)
  Sender: FDA-Public Use
  Company Number: US-PFIZER INC-2011181440

PATIENT
  Sex: Male
  Weight: 60.317 kg

DRUGS (2)
  1. LEVAQUIN [Concomitant]
     Indication: BRONCHITIS
     Dosage: 750 MG, 1X/DAY, 10 DAYS
     Route: 048
  2. SUNITINIB MALATE [Suspect]
     Indication: LUNG NEOPLASM MALIGNANT
     Dosage: 37.5 MG DAILY, 42 DAYS, CYCLE 12
     Route: 048
     Dates: start: 20110629

REACTIONS (3)
  - CHRONIC OBSTRUCTIVE PULMONARY DISEASE [None]
  - CHEST PAIN [None]
  - BRONCHITIS [None]
